FAERS Safety Report 7313525-6 (Version None)
Quarter: 2011Q1

REPORT INFORMATION
  Report Type: 
  Country: None (occurrence: None)
  Receive Date: 20110225
  Receipt Date: 20110223
  Transmission Date: 20110831
  Serious: Yes (Death, Hospitalization, Other)
  Sender: FDA-Public Use
  Company Number: GB-TEVA-267494ISR

PATIENT
  Age: 67 Year
  Sex: Female

DRUGS (2)
  1. GEMCITABINE [Suspect]
     Indication: ANGIOSARCOMA
     Dosage: 4 CYCLES.
  2. DOCETAXEL [Suspect]
     Indication: ANGIOSARCOMA
     Dosage: 4 CYCLES.

REACTIONS (3)
  - ANGIOSARCOMA [None]
  - HAEMORRHAGE [None]
  - THROMBOCYTOPENIA [None]
